FAERS Safety Report 22060972 (Version 1)
Quarter: 2023Q1

REPORT INFORMATION
  Report Type: Spontaneous
  Country: US (occurrence: US)
  Receive Date: 20230303
  Receipt Date: 20230303
  Transmission Date: 20230418
  Serious: No
  Sender: FDA-Public Use
  Company Number: US-PFIZER INC-PV202300039151

PATIENT
  Age: 59 Year
  Sex: Female

DRUGS (1)
  1. SULFASALAZINE [Suspect]
     Active Substance: SULFASALAZINE
     Indication: Connective tissue disorder
     Dosage: 2 DF, 2X/DAY (TWO 500MG TABLETS TWICE DAILY)
     Dates: start: 202302

REACTIONS (2)
  - Product odour abnormal [Unknown]
  - Intentional dose omission [Unknown]

NARRATIVE: CASE EVENT DATE: 20230210
